FAERS Safety Report 9563769 (Version 1)
Quarter: 2013Q3

REPORT INFORMATION
  Report Type: Spontaneous
  Country: US (occurrence: None)
  Receive Date: 20130926
  Receipt Date: 20130926
  Transmission Date: 20140515
  Serious: Yes (Other)
  Sender: FDA-Public Use
  Company Number: ACO_38330_2013

PATIENT
  Age: 62 Year
  Sex: Female
  Weight: 63.5 kg

DRUGS (11)
  1. AMPYRA [Suspect]
     Indication: GAIT DISTURBANCE
     Route: 048
     Dates: start: 20130805
  2. LISINOPRIL [Suspect]
     Indication: PRODUCT USED FOR UNKNOWN INDICATION
     Dates: end: 201309
  3. REBIF [Suspect]
     Indication: GAIT DISTURBANCE
  4. SYNTHROID (LEVOTHYROXINE SODIUM) [Concomitant]
  5. VIVELLE DOT (ESTRADIOL) [Concomitant]
  6. CIMETIDINE (CIMETIDINE HYDROCHLORIDE) [Concomitant]
  7. VITATMIN D (ERGOCALCIFEROL) [Concomitant]
  8. CLARITIN (LORATADINE) [Concomitant]
  9. PEPCID (FAMOTIDINE) [Concomitant]
  10. MULTIVITAMIN (VITAMINS NOS) [Concomitant]
  11. RANITIDINE (RANITIDINE HYDROCHLORIDE) [Concomitant]

REACTIONS (12)
  - Blood pressure decreased [None]
  - Vertigo [None]
  - Lhermitte^s sign [None]
  - Dysgeusia [None]
  - Decreased appetite [None]
  - Vomiting [None]
  - Cough [None]
  - Influenza like illness [None]
  - Chills [None]
  - Feeling hot [None]
  - Hangover [None]
  - Nausea [None]
